FAERS Safety Report 18617055 (Version 2)
Quarter: 2021Q1

REPORT INFORMATION
  Report Type: Report from Study
  Country: FR (occurrence: FR)
  Receive Date: 20201215
  Receipt Date: 20210205
  Transmission Date: 20210419
  Serious: Yes (Hospitalization)
  Sender: FDA-Public Use
  Company Number: FR-ROCHE-2728334

PATIENT
  Age: 70 Year
  Sex: Female

DRUGS (7)
  1. PEMETREXED. [Concomitant]
     Active Substance: PEMETREXED
     Dosage: 675 MILLIGRAM EVERY 1 CYCLE(S) DAY1 OF CYCLE OF 21 DAYS
     Route: 042
     Dates: end: 20201104
  2. CARBOPLATIN. [Concomitant]
     Active Substance: CARBOPLATIN
     Indication: NON-SMALL CELL LUNG CANCER
     Dosage: 540 MILLIGRAM EVERY 1 CYCLE(S) DAY1 OF CYCLE OF 21 DAYS
     Route: 042
     Dates: start: 20200630
  3. CARBOPLATIN. [Concomitant]
     Active Substance: CARBOPLATIN
     Dosage: 520 MILLIGRAM EVERY 1 CYCLE(S) DAY1 OF CYCLE OF 21 DAYS
     Route: 042
     Dates: end: 20200902
  4. ATEZOLIZUMAB. [Suspect]
     Active Substance: ATEZOLIZUMAB
     Indication: NON-SMALL CELL LUNG CANCER
     Dosage: 1200 MILLIGRAM EVERY 1 CYCLE(S) DAY 1 OF CYCLE OF 21 DAYS, 7 CYCLES
     Route: 042
     Dates: start: 20200630, end: 20201104
  5. PEMETREXED. [Concomitant]
     Active Substance: PEMETREXED
     Indication: NON-SMALL CELL LUNG CANCER
     Dosage: 700 MILLIGRAM EVERY 1 CYCLE(S) DAY1 OF CYCLE OF 21 DAYS
     Route: 042
     Dates: start: 20200630
  6. BEVACIZUMAB. [Suspect]
     Active Substance: BEVACIZUMAB
     Indication: NON-SMALL CELL LUNG CANCER
     Dosage: 700 MILLIGRAM PER A CYCLICAL, 7 CYCLES
     Route: 042
     Dates: start: 20200630, end: 20201104
  7. BEVACIZUMAB. [Suspect]
     Active Substance: BEVACIZUMAB
     Dosage: 650 MILLIGRAM PER A CYCLICAL, 7 CYCLES
     Route: 042
     Dates: end: 20201104

REACTIONS (2)
  - General physical health deterioration [Recovered/Resolved]
  - Vomiting [Recovered/Resolved]

NARRATIVE: CASE EVENT DATE: 20201125
